FAERS Safety Report 8136590-5 (Version None)
Quarter: 2012Q1

REPORT INFORMATION
  Report Type: 
  Country: None (occurrence: None)
  Receive Date: 20120214
  Receipt Date: 20120207
  Transmission Date: 20120608
  Serious: Yes (Other)
  Sender: FDA-Public Use
  Company Number: PHHY2012GB011740

PATIENT
  Age: 65 Year
  Sex: Male
  Weight: 76.2 kg

DRUGS (3)
  1. SINEMET [Concomitant]
     Indication: PARKINSON'S DISEASE
     Dosage: UNK UKN, UNK
     Route: 048
     Dates: start: 20090901
  2. STALEVO 100 [Suspect]
     Indication: PARKINSON'S DISEASE
     Dosage: 12.5 MG, UNK
     Route: 048
     Dates: start: 20110601, end: 20110701
  3. SINEMET [Concomitant]
     Indication: PARKINSON'S DISEASE
     Dosage: 12.5 MG, UNK
     Route: 048
     Dates: start: 20050901

REACTIONS (1)
  - RENAL PAIN [None]
